APPROVED DRUG PRODUCT: DIPHENHYDRAMINE HYDROCHLORIDE
Active Ingredient: DIPHENHYDRAMINE HYDROCHLORIDE
Strength: 50MG
Dosage Form/Route: CAPSULE;ORAL
Application: A087978 | Product #001
Applicant: LNK INTERNATIONAL INC
Approved: Jan 27, 1983 | RLD: No | RS: No | Type: DISCN